FAERS Safety Report 8658369 (Version 2)
Quarter: 2013Q4

REPORT INFORMATION
  Report Type: Report from Study
  Country: US (occurrence: US)
  Receive Date: 20120710
  Receipt Date: 20131210
  Transmission Date: 20140711
  Serious: Yes (Death)
  Sender: FDA-Public Use
  Company Number: US-ROCHE-1083753

PATIENT
  Sex: Male

DRUGS (12)
  1. AVASTIN [Suspect]
     Indication: APPENDIX CANCER
     Dosage: 513 MG
     Route: 042
     Dates: start: 20111101
  2. FLUOROURACIL [Concomitant]
     Dosage: 800 MG
     Route: 042
     Dates: start: 20111101
  3. FLUOROURACIL [Concomitant]
     Dosage: GIVE OVER 46 HOURS BY PUMP INFUSION 4000 MG
     Route: 050
     Dates: start: 20111101
  4. OXALIPLATIN [Concomitant]
     Dosage: 170 MG
     Route: 042
     Dates: start: 20111101
  5. LEUCOVORIN [Concomitant]
     Dosage: 400 MG
     Route: 042
     Dates: start: 20111101
  6. DIPHENHYDRAMINE HCL [Concomitant]
     Indication: PREMEDICATION
     Route: 042
     Dates: start: 20111101
  7. FAMOTIDINE [Concomitant]
     Indication: PREMEDICATION
     Route: 042
     Dates: start: 20111101
  8. PALONOSETRON HYDROCHLORIDE [Concomitant]
     Route: 042
     Dates: start: 20111101
  9. DEXAMETHASONE SODIUM PHOSPHATE [Concomitant]
     Route: 042
     Dates: start: 20111101
  10. COUMADIN [Concomitant]
     Route: 048
     Dates: start: 20111101
  11. HYDROCORTISONE SUCCINATE [Concomitant]
  12. METHYLPREDNISOLONE [Concomitant]

REACTIONS (1)
  - Disease progression [Fatal]
